FAERS Safety Report 9424811 (Version 1)
Quarter: 2013Q3

REPORT INFORMATION
  Report Type: Spontaneous
  Country: GB (occurrence: None)
  Receive Date: 20130724
  Receipt Date: 20130724
  Transmission Date: 20140515
  Serious: Yes (Hospitalization)
  Sender: FDA-Public Use
  Company Number: SYM-2013-06681

PATIENT
  Age: 74 Year
  Sex: 0

DRUGS (3)
  1. METRONIDAZOLE [Suspect]
     Indication: ASPIRATION
     Dosage: 500MG, 3 IN 1 D, INTRAVENOUS DRIP
     Route: 041
     Dates: start: 20110525, end: 20110527
  2. FLUCLOXACILLIN [Suspect]
     Indication: PRODUCT USED FOR UNKNOWN INDICATION
     Dosage: 500MG/KG, 4 IN 1 D, ORAL
     Route: 048
     Dates: start: 20090601, end: 20090608
  3. CEFTRIAXONE [Suspect]
     Indication: MENINGITIS MENINGOCOCCAL
     Dosage: 2GM, 2 IN 1 D, INTRAVENOUS DRIP
     Route: 041
     Dates: start: 20110525, end: 20110603

REACTIONS (1)
  - Clostridium difficile infection [None]
